FAERS Safety Report 12916252 (Version 1)
Quarter: 2016Q4

REPORT INFORMATION
  Report Type: Spontaneous
  Country: US (occurrence: US)
  Receive Date: 20161103
  Receipt Date: 20161103
  Transmission Date: 20170207
  Serious: Yes (Other)
  Sender: FDA-Public Use
  Company Number: None

PATIENT
  Age: 60 Year
  Sex: Male
  Weight: 95.94 kg

DRUGS (2)
  1. INH [Suspect]
     Active Substance: ISONIAZID
     Indication: LATENT TUBERCULOSIS
     Route: 048
     Dates: start: 20160809, end: 20161006
  2. PRIFTIN [Concomitant]
     Active Substance: RIFAPENTINE

REACTIONS (7)
  - Alanine aminotransferase increased [None]
  - Blood alkaline phosphatase increased [None]
  - Fatigue [None]
  - Aspartate aminotransferase increased [None]
  - Blood bilirubin increased [None]
  - Asthenia [None]
  - Weight decreased [None]

NARRATIVE: CASE EVENT DATE: 20161005
